FAERS Safety Report 9514791 (Version 2)
Quarter: 2013Q3

REPORT INFORMATION
  Report Type: Spontaneous
  Country: DE (occurrence: DE)
  Receive Date: 20130911
  Receipt Date: 20130911
  Transmission Date: 20140515
  Serious: Yes (Hospitalization)
  Sender: FDA-Public Use
  Company Number: DE-INDICUS PHARMA-000104

PATIENT
  Age: 69 Year
  Sex: Male

DRUGS (4)
  1. METFORMIN HYDROCHLORIDE [Suspect]
     Indication: PRODUCT USED FOR UNKNOWN INDICATION
     Dosage: 1-0-1
  2. GLIBENCLAMIDE [Suspect]
     Indication: PRODUCT USED FOR UNKNOWN INDICATION
     Dosage: 3,5 MG, 1-0-1
  3. METOPROLOL [Concomitant]
     Dosage: 1-0-0
  4. ASS [Concomitant]
     Dosage: 1-0-0

REACTIONS (2)
  - Diabetic nephropathy [Unknown]
  - Hypoglycaemia [Unknown]
